FAERS Safety Report 7911091-5 (Version None)
Quarter: 2011Q4

REPORT INFORMATION
  Report Type: 
  Country: None (occurrence: None)
  Receive Date: 20111114
  Receipt Date: 20111101
  Transmission Date: 20120403
  Serious: Yes (Hospitalization)
  Sender: FDA-Public Use
  Company Number: GB-RANBAXY-2011US-50159

PATIENT
  Age: 74 Year
  Sex: Female

DRUGS (1)
  1. NITROFURANTOIN [Suspect]
     Indication: PROPHYLAXIS URINARY TRACT INFECTION
     Dosage: 100 MG DAILY
     Route: 065

REACTIONS (1)
  - AUTOIMMUNE HEPATITIS [None]
